FAERS Safety Report 24868338 (Version 1)
Quarter: 2025Q1

REPORT INFORMATION
  Report Type: Spontaneous
  Country: US (occurrence: US)
  Receive Date: 20250121
  Receipt Date: 20250121
  Transmission Date: 20250409
  Serious: Yes (Hospitalization)
  Sender: MYLAN
  Company Number: US-MYLANLABS-2025M1002670

PATIENT
  Age: 76 Year
  Sex: Female

DRUGS (4)
  1. MOXIFLOXACIN [Suspect]
     Active Substance: MOXIFLOXACIN
     Indication: Antibiotic prophylaxis
     Dosage: UNK UNK, QD (RECEIVED 8 TIMES)
     Route: 061
  2. PREDNISOLONE [Suspect]
     Active Substance: PREDNISOLONE
     Indication: Immunosuppressant drug therapy
     Dosage: UNK, QD (RECEIVED 4 TIMES)
     Route: 065
  3. ERYTHROMYCIN [Concomitant]
     Active Substance: ERYTHROMYCIN
     Indication: Evidence based treatment
     Route: 065
  4. VALACYCLOVIR [Concomitant]
     Active Substance: VALACYCLOVIR HYDROCHLORIDE
     Indication: Evidence based treatment
     Route: 048

REACTIONS (2)
  - Fusarium infection [Recovering/Resolving]
  - Keratitis fungal [Recovering/Resolving]
